FAERS Safety Report 16306814 (Version 1)
Quarter: 2019Q2

REPORT INFORMATION
  Report Type: Report from Study
  Country: MX (occurrence: MX)
  Receive Date: 20190513
  Receipt Date: 20190513
  Transmission Date: 20190711
  Serious: Yes (Other)
  Sender: FDA-Public Use
  Company Number: PHHY2019MX102654

PATIENT
  Sex: Female
  Weight: 60 kg

DRUGS (2)
  1. GALVUS MET [Suspect]
     Active Substance: METFORMIN HYDROCHLORIDE\VILDAGLIPTIN
     Indication: DIABETES MELLITUS
     Dosage: 1 DF, QD (METFORMIN 500 MG, VILDAGLIPTIN 50 MG)
     Route: 048
     Dates: start: 20160519, end: 201606
  2. GALVUS MET [Suspect]
     Active Substance: METFORMIN HYDROCHLORIDE\VILDAGLIPTIN
     Dosage: 1 DF, QD (METFORMIN 500 MG, VILDAGLIPTIN 50 MG)
     Route: 048
     Dates: start: 201902, end: 201903

REACTIONS (2)
  - Diabetes mellitus inadequate control [Unknown]
  - Deafness [Unknown]
